FAERS Safety Report 15438810 (Version 1)
Quarter: 2018Q3

REPORT INFORMATION
  Report Type: Spontaneous
  Country: US (occurrence: US)
  Receive Date: 20180928
  Receipt Date: 20180928
  Transmission Date: 20181010
  Serious: Yes (Other)
  Sender: FDA-Public Use
  Company Number: US-AMGEN-USASP2018133667

PATIENT
  Age: 54 Year
  Sex: Female

DRUGS (1)
  1. AIMOVIG [Suspect]
     Active Substance: ERENUMAB-AOOE
     Indication: MIGRAINE
     Dosage: 140 MG, QMO
     Route: 058
     Dates: start: 2018, end: 2018

REACTIONS (6)
  - Headache [Unknown]
  - Feeling drunk [Unknown]
  - Dizziness [Unknown]
  - Asthenia [Unknown]
  - Sedation [Unknown]
  - Vision blurred [Unknown]

NARRATIVE: CASE EVENT DATE: 2018
